FAERS Safety Report 20838512 (Version 2)
Quarter: 2022Q2

REPORT INFORMATION
  Report Type: Spontaneous
  Country: US (occurrence: US)
  Receive Date: 20220517
  Receipt Date: 20220615
  Transmission Date: 20220721
  Serious: Yes (Other)
  Sender: FDA-Public Use
  Company Number: US-PFIZER INC-202200697414

PATIENT
  Age: 79 Year
  Sex: Female

DRUGS (3)
  1. XELJANZ [Suspect]
     Active Substance: TOFACITINIB CITRATE
     Dosage: 10 MG, 2X/DAY(BID FOR 8 WEEKS)
  2. XELJANZ [Suspect]
     Active Substance: TOFACITINIB CITRATE
     Dosage: 5 MG, 2X/DAY
  3. ENTIVIO [Concomitant]
     Dosage: UNK

REACTIONS (6)
  - Blindness unilateral [Unknown]
  - Macular degeneration [Unknown]
  - Colitis ulcerative [Unknown]
  - Product dose omission issue [Unknown]
  - Rotator cuff syndrome [Unknown]
  - Cardiac disorder [Unknown]
